FAERS Safety Report 22010313 (Version 1)
Quarter: 2023Q1

REPORT INFORMATION
  Report Type: Spontaneous
  Country: CA (occurrence: CA)
  Receive Date: 20230220
  Receipt Date: 20230220
  Transmission Date: 20230418
  Serious: Yes (Other)
  Sender: FDA-Public Use
  Company Number: CA-002147023-NVSC2023CA034851

PATIENT
  Age: 70 Year
  Sex: Female

DRUGS (2)
  1. OXALIPLATIN [Suspect]
     Active Substance: OXALIPLATIN
     Indication: Colorectal cancer metastatic
     Dosage: UNK
     Route: 065
  2. RALTITREXED [Suspect]
     Active Substance: RALTITREXED
     Indication: Colorectal cancer metastatic
     Dosage: UNK
     Route: 065

REACTIONS (2)
  - Gastrointestinal toxicity [Unknown]
  - Neoplasm progression [Unknown]
